FAERS Safety Report 5824492-6 (Version None)
Quarter: 2008Q3

REPORT INFORMATION
  Report Type: 
  Country: None (occurrence: None)
  Receive Date: 20080722
  Receipt Date: 20080714
  Transmission Date: 20090109
  Serious: Yes (Death, Hospitalization)
  Sender: FDA-Public Use
  Company Number: 2008-02507

PATIENT
  Sex: Female

DRUGS (3)
  1. VELCADE [Suspect]
     Indication: LYMPHOMA
     Dosage: 1.3 MG/M2
     Route: 042
     Dates: start: 20080528, end: 20080607
  2. GEMCITABINE [Concomitant]
  3. RITUXIMAB [Concomitant]

REACTIONS (2)
  - HOSPITALISATION [None]
  - TRANSFUSION [None]
